FAERS Safety Report 9356173 (Version 1)
Quarter: 2013Q2

REPORT INFORMATION
  Report Type: Report from Study
  Country: US (occurrence: US)
  Receive Date: 20130619
  Receipt Date: 20130619
  Transmission Date: 20140414
  Serious: Yes (Hospitalization)
  Sender: FDA-Public Use
  Company Number: US-PURDUE-USA-2013-0099886

PATIENT
  Age: 49 Year
  Sex: Female

DRUGS (1)
  1. OXYCONTIN (NDA 22-272) [Suspect]
     Indication: PRODUCT USED FOR UNKNOWN INDICATION
     Dosage: 160 MG, Q12H
     Route: 048

REACTIONS (6)
  - Pneumonia [Recovered/Resolved]
  - Sepsis [Recovered/Resolved]
  - Skin lesion [Recovered/Resolved]
  - Skin infection [Recovered/Resolved]
  - Nasopharyngitis [Not Recovered/Not Resolved]
  - Influenza [Not Recovered/Not Resolved]
